FAERS Safety Report 4610829-2 (Version None)
Quarter: 2005Q2

REPORT INFORMATION
  Report Type: 
  Country: None (occurrence: None)
  Receive Date: 20050228
  Receipt Date: 20040309
  Transmission Date: 20051028
  Serious: Yes (Other)
  Sender: FDA-Public Use
  Company Number: 9039997-2004-00015

PATIENT
  Age: 47 Year
  Sex: Female

DRUGS (2)
  1. LEVULAN KERASTICK FOR TOPICAL SOLUTION, 20% [Suspect]
     Indication: ACNE
     Dosage: 20%, ONCE, TOPICAL
     Route: 061
     Dates: start: 20040511
  2. TOPICAL RETIN-A [Concomitant]

REACTIONS (4)
  - APPLICATION SITE ERYTHEMA [None]
  - APPLICATION SITE IRRITATION [None]
  - PAIN OF SKIN [None]
  - SKIN EXFOLIATION [None]
